FAERS Safety Report 6890368-9 (Version None)
Quarter: 2010Q3

REPORT INFORMATION
  Report Type: 
  Country: None (occurrence: None)
  Receive Date: 20100730
  Receipt Date: 20081002
  Transmission Date: 20110219
  Serious: No
  Sender: FDA-Public Use
  Company Number: US-PFIZER INC-2008083418

PATIENT
  Sex: Female

DRUGS (3)
  1. DOXYCYCLINE [Suspect]
     Indication: CYST
     Route: 048
     Dates: start: 20080922
  2. ALDARA [Suspect]
     Indication: CYST
     Dosage: 3 EVERY 1 WEEKS
     Route: 061
     Dates: start: 20080922, end: 20080927
  3. FEMARA [Concomitant]

REACTIONS (2)
  - APPLICATION SITE DISCHARGE [None]
  - APPLICATION SITE ERYTHEMA [None]
